FAERS Safety Report 9095475 (Version 1)
Quarter: 2013Q1

REPORT INFORMATION
  Report Type: Spontaneous
  Country: US (occurrence: None)
  Receive Date: 20130124
  Receipt Date: 20130124
  Transmission Date: 20140127
  Serious: Yes (Hospitalization, Other)
  Sender: FDA-Public Use
  Company Number: 2012-001845

PATIENT
  Age: 58 Year
  Sex: Male

DRUGS (27)
  1. ACTONEL (RISEDRONATE SODIUM) TABLET, 35MG [Suspect]
     Route: 048
     Dates: start: 2006, end: 2009
  2. ACTONEL (RISEDRONATE SODIUM) TABLET, 35MG [Suspect]
     Route: 048
     Dates: start: 2006, end: 2009
  3. FOSAMAX (ALENDRONATE SODIUM) [Suspect]
  4. FOSAMAX (ALENDRONATE SODIUM) [Suspect]
  5. PREDNISONE (PREDNISONE) [Concomitant]
  6. ENBREL (ETANERCEPT) [Concomitant]
  7. METHOTREXATE (METHOTREXATE) [Concomitant]
  8. FOLIC ACID (FOLIC ACID) [Concomitant]
  9. ASPIRIN (ACETYLSALICYLIC ACID) [Concomitant]
  10. PLAVIX (CLOPIDOGREL BISULFATE) [Concomitant]
  11. COUMADIN /00014802/ (WARFARIN SODIUM) [Concomitant]
  12. MEXILETINE (MEXILETINE) [Concomitant]
  13. BETAPACE (SOTALOL HYDROCHLORIDE) [Concomitant]
  14. COREG (CARVEDILOL) [Concomitant]
  15. ALTACE (RAMIPRIL) [Concomitant]
  16. ZETIA (EZETIMIBE) [Concomitant]
  17. LASIX /00032601/ (FUROSEMIDE) [Concomitant]
  18. K-DUR (POTASSIUM CHLORIDE) [Concomitant]
  19. VYTORIN (EZETIMIBE, SIMVASTATIN) [Concomitant]
  20. ZOCOR (SIMVASTATIN) [Concomitant]
  21. ALLEGRA [Concomitant]
  22. FLONASE (FLUTICASONE PROPIONATE) [Concomitant]
  23. PROTONIX (PANTOPRAZOLE SODIUM SESQUIHYDRATE) [Concomitant]
  24. PREVACID (LANSOPRAZOLE) [Concomitant]
  25. AMBIEN (ZOLPIDEM TARTRATE) [Concomitant]
  26. CALCIUM (CALCIUM) [Concomitant]
  27. VITAMIN D /00318501/ (COLECALCIFEROL) [Concomitant]

REACTIONS (11)
  - Femur fracture [None]
  - Fracture displacement [None]
  - Stress fracture [None]
  - Fall [None]
  - Pain in extremity [None]
  - Pathological fracture [None]
  - Bone disorder [None]
  - Low turnover osteopathy [None]
  - Pain [None]
  - Osteogenesis imperfecta [None]
  - Bone callus excessive [None]
